FAERS Safety Report 6821237-8 (Version None)
Quarter: 2010Q3

REPORT INFORMATION
  Report Type: 
  Country: None (occurrence: None)
  Receive Date: 20100707
  Receipt Date: 20080416
  Transmission Date: 20110219
  Serious: No
  Sender: FDA-Public Use
  Company Number: US-PFIZER INC-2008033969

PATIENT
  Age: 37 Year
  Sex: Female

DRUGS (4)
  1. ZOLOFT [Suspect]
     Indication: PANIC DISORDER
     Dates: start: 20031101, end: 20071101
  2. ZOLOFT [Suspect]
     Indication: DEPRESSION
  3. PREVACID [Concomitant]
  4. THYROID TAB [Concomitant]
     Indication: HYPOTHYROIDISM

REACTIONS (1)
  - BLOOD THYROID STIMULATING HORMONE DECREASED [None]
